FAERS Safety Report 19064075 (Version 1)
Quarter: 2021Q1

REPORT INFORMATION
  Report Type: Spontaneous
  Country: NL (occurrence: NL)
  Receive Date: 20210326
  Receipt Date: 20210326
  Transmission Date: 20210420
  Serious: Yes (Hospitalization, Other)
  Sender: FDA-Public Use
  Company Number: NL-AMGEN-NLDSP2021006966

PATIENT
  Weight: 25 kg

DRUGS (4)
  1. MIMPARA [Suspect]
     Active Substance: CINACALCET HYDROCHLORIDE
     Indication: BLOOD PARATHYROID HORMONE ABNORMAL
     Dosage: 5 MILLIGRAM, QD
     Route: 065
  2. VITAMIN D [COLECALCIFEROL] [Concomitant]
     Active Substance: CHOLECALCIFEROL
  3. ETALPHA [Concomitant]
     Active Substance: ALFACALCIDOL
  4. MIMPARA [Suspect]
     Active Substance: CINACALCET HYDROCHLORIDE
     Dosage: 2.5 MILLIGRAM, QD
     Route: 065

REACTIONS (3)
  - Osteomyelitis [Unknown]
  - Hypercalcaemia [Recovered/Resolved]
  - Staphylococcal sepsis [Unknown]
